FAERS Safety Report 9026094 (Version 1)
Quarter: 2013Q1

REPORT INFORMATION
  Report Type: Spontaneous
  Country: CA (occurrence: None)
  Receive Date: 20130107
  Receipt Date: 20130107
  Transmission Date: 20140127
  Serious: Yes (Other)
  Sender: FDA-Public Use
  Company Number: MC201200716

PATIENT
  Age: 44 Year
  Sex: Male

DRUGS (3)
  1. ANGIOMAX [Suspect]
     Indication: PERCUTANEOUS CORONARY INTERVENTION
     Dosage: INFUSION
     Route: 042
     Dates: start: 20120320, end: 20120320
  2. ASPIRIN (ACETYLSALICYLIC ACID) [Concomitant]
  3. PRASUGREL (PRASUGREL) [Concomitant]

REACTIONS (6)
  - Thrombosis in device [None]
  - Electrocardiogram ST segment elevation [None]
  - Chest pain [None]
  - Atrioventricular block complete [None]
  - Hypotension [None]
  - Nodal rhythm [None]
